FAERS Safety Report 26121733 (Version 1)
Quarter: 2025Q4

REPORT INFORMATION
  Report Type: Report from Study
  Country: EU (occurrence: EU)
  Receive Date: 20251204
  Receipt Date: 20251204
  Transmission Date: 20260117
  Serious: Yes (Other)
  Sender: TEVA
  Company Number: EU-TEVA-VS-3398115

PATIENT
  Age: 65 Year
  Sex: Female

DRUGS (2)
  1. TERIPARATIDE [Suspect]
     Active Substance: TERIPARATIDE
     Indication: Osteoporosis
     Dosage: FORM STRENGTH: 20 MCG/80 MCL
     Route: 065
     Dates: start: 20251119, end: 20251125
  2. DABIGATRAN [Concomitant]
     Active Substance: DABIGATRAN
     Indication: Anticoagulant therapy
     Dosage: START DATE: SOME TIME AGO; END DATE: CONTINUES.
     Route: 065

REACTIONS (4)
  - Diarrhoea haemorrhagic [Recovered/Resolved]
  - Vomiting [Recovered/Resolved]
  - Dizziness [Unknown]
  - Gastrointestinal pain [Recovered/Resolved]

NARRATIVE: CASE EVENT DATE: 20251119
